FAERS Safety Report 5722240-1 (Version None)
Quarter: 2008Q2

REPORT INFORMATION
  Report Type: 
  Country: None (occurrence: None)
  Receive Date: 20080429
  Receipt Date: 20080423
  Transmission Date: 20081010
  Serious: Yes (Hospitalization)
  Sender: FDA-Public Use
  Company Number: US-BAXTER-2007BH004244

PATIENT
  Age: 3 Year
  Sex: Female
  Weight: 12 kg

DRUGS (1)
  1. ARTISS [Suspect]
     Indication: SKIN GRAFT
     Route: 061
     Dates: start: 20070308, end: 20070308

REACTIONS (5)
  - ANAPHYLACTIC REACTION [None]
  - END-TIDAL CO2 DECREASED [None]
  - HYPOTENSION [None]
  - PURPURA [None]
  - SHOCK [None]
